FAERS Safety Report 17876990 (Version 1)
Quarter: 2020Q2

REPORT INFORMATION
  Report Type: Spontaneous
  Country: US (occurrence: US)
  Receive Date: 20200609
  Receipt Date: 20200609
  Transmission Date: 20200714
  Serious: Yes (Other)
  Sender: FDA-Public Use
  Company Number: US-FRESENIUS KABI-FK202005674

PATIENT
  Age: 62 Year
  Sex: Male
  Weight: 144 kg

DRUGS (3)
  1. VANCOMYCIN [Concomitant]
     Active Substance: VANCOMYCIN
     Indication: BACTERIAL INFECTION
     Route: 065
  2. MICAFUNGIN (MANUFACTURER UNKOWN) [Suspect]
     Active Substance: MICAFUNGIN
     Indication: FUNGAEMIA
     Route: 042
  3. PIPERACILLIN SODIUM/TAZOBACTAM SODIUM [Concomitant]
     Active Substance: PIPERACILLIN SODIUM\TAZOBACTAM SODIUM
     Indication: BACTERIAL INFECTION
     Route: 065

REACTIONS (4)
  - Fungaemia [Unknown]
  - Drug resistance [Unknown]
  - Candida infection [Unknown]
  - Drug level below therapeutic [Unknown]
